FAERS Safety Report 11078020 (Version 1)
Quarter: 2015Q2

REPORT INFORMATION
  Report Type: Spontaneous
  Country: US (occurrence: None)
  Receive Date: 20150429
  Receipt Date: 20150429
  Transmission Date: 20150821
  Serious: Yes (Hospitalization)
  Sender: FDA-Public Use
  Company Number: None

PATIENT
  Age: 72 Year
  Sex: Male

DRUGS (1)
  1. STIVARGA [Suspect]
     Active Substance: REGORAFENIB
     Indication: GASTROINTESTINAL CARCINOMA
     Dosage: 3 TABS ONCE DAILY
     Route: 048
     Dates: start: 20141104, end: 20150415

REACTIONS (1)
  - Disease progression [None]

NARRATIVE: CASE EVENT DATE: 20150427
